FAERS Safety Report 7329495-0 (Version None)
Quarter: 2011Q1

REPORT INFORMATION
  Report Type: 
  Country: None (occurrence: None)
  Receive Date: 20110303
  Receipt Date: 20110225
  Transmission Date: 20110831
  Serious: Yes (Hospitalization)
  Sender: FDA-Public Use
  Company Number: JP-ABBOTT-11P-087-0708337-00

PATIENT
  Age: 74 Year
  Sex: Male
  Weight: 41 kg

DRUGS (9)
  1. PLETAL [Concomitant]
     Indication: DISEASE COMPLICATION
     Dosage: 200 MG DAILY DOSE
     Route: 048
  2. AROTINOLOL HYDROCHLORIDE [Concomitant]
     Indication: DISEASE COMPLICATION
     Dosage: 5 MG DAILY DOSE
     Route: 048
  3. ETHAMBUTOL HYDROCHLORIDE [Concomitant]
     Indication: ATYPICAL MYCOBACTERIAL INFECTION
     Dosage: 750 MG DAILY DOSE
     Dates: start: 20091221, end: 20100702
  4. NORVASC [Concomitant]
     Indication: DISEASE COMPLICATION
     Dosage: 5 MG DAILY DOSE
     Route: 048
  5. ASPIRIN [Concomitant]
     Indication: DISEASE COMPLICATION
     Dosage: 100 MG DAILY DOSE
     Route: 048
  6. ANPLAG [Concomitant]
     Indication: DISEASE COMPLICATION
     Dosage: 300 MG DAILY DOSE
     Route: 048
  7. CLARITH TABLETS [Suspect]
     Indication: ATYPICAL MYCOBACTERIAL INFECTION
     Route: 048
     Dates: start: 20091221, end: 20100702
  8. RIFAMPICIN [Concomitant]
     Indication: ATYPICAL MYCOBACTERIAL INFECTION
     Dosage: 450 MG DAILY DOSE
     Dates: start: 20091221, end: 20100702
  9. URIEF [Concomitant]
     Indication: DISEASE COMPLICATION
     Dosage: 8 MG DAILY DOSE
     Route: 048

REACTIONS (3)
  - WEIGHT DECREASED [None]
  - PRURITUS [None]
  - DECREASED APPETITE [None]
